FAERS Safety Report 4916929-1 (Version None)
Quarter: 2006Q1

REPORT INFORMATION
  Report Type: 
  Country: None (occurrence: None)
  Receive Date: 20060221
  Receipt Date: 20041109
  Transmission Date: 20060701
  Serious: Yes (Other)
  Sender: FDA-Public Use
  Company Number: PHEH2004US12084

PATIENT
  Age: 54 Year
  Sex: Male

DRUGS (4)
  1. ZOMETA [Suspect]
     Indication: MULTIPLE MYELOMA
     Dosage: UNK, QMO
     Dates: start: 20010101
  2. THALIDOMIDE [Concomitant]
     Indication: MULTIPLE MYELOMA
     Dates: start: 19980101
  3. NEURONTIN [Concomitant]
     Indication: NEUROPATHY
  4. AREDIA [Suspect]

REACTIONS (3)
  - FAILURE OF IMPLANT [None]
  - OSTEONECROSIS [None]
  - TOOTH FRACTURE [None]
